FAERS Safety Report 14818814 (Version 1)
Quarter: 2018Q2

REPORT INFORMATION
  Report Type: Spontaneous
  Country: US (occurrence: US)
  Receive Date: 20180417
  Receipt Date: 20180417
  Transmission Date: 20180711
  Serious: Yes (Hospitalization, Other)
  Sender: FDA-Public Use
  Company Number: None

PATIENT
  Age: 66 Year
  Sex: Female
  Weight: 114.75 kg

DRUGS (6)
  1. DEMADEX [Concomitant]
     Active Substance: TORSEMIDE
  2. TANZEUM [Suspect]
     Active Substance: ALBIGLUTIDE
     Indication: DIABETES MELLITUS
     Dosage: ?          QUANTITY:1 INJECTION(S);?
     Route: 058
     Dates: start: 20171001, end: 20180324
  3. LYRICA [Concomitant]
     Active Substance: PREGABALIN
  4. METOPROLOL. [Concomitant]
     Active Substance: METOPROLOL
  5. PROBIOTICS [Concomitant]
     Active Substance: PROBIOTICS NOS
  6. FIBER CHEWS [Concomitant]

REACTIONS (5)
  - Nausea [None]
  - Dehydration [None]
  - Pruritus [None]
  - Vomiting [None]
  - Diarrhoea [None]

NARRATIVE: CASE EVENT DATE: 20180111
